FAERS Safety Report 5638550-2 (Version None)
Quarter: 2008Q1

REPORT INFORMATION
  Report Type: 
  Country: None (occurrence: None)
  Receive Date: 20080226
  Receipt Date: 20070413
  Transmission Date: 20080703
  Serious: No
  Sender: FDA-Public Use
  Company Number: A0647198A

PATIENT
  Sex: Female

DRUGS (1)
  1. IMITREX [Suspect]

REACTIONS (3)
  - HYPERACUSIS [None]
  - PHOTOSENSITIVITY REACTION [None]
  - SOMNOLENCE [None]
